FAERS Safety Report 16722466 (Version 1)
Quarter: 2019Q3

REPORT INFORMATION
  Report Type: Spontaneous
  Country: RU (occurrence: RU)
  Receive Date: 20190820
  Receipt Date: 20190820
  Transmission Date: 20191005
  Serious: Yes (Other)
  Sender: FDA-Public Use
  Company Number: RU-ALLERGAN-1934024US

PATIENT
  Sex: Female

DRUGS (1)
  1. CEFTAROLINE FOSAMIL - BP [Suspect]
     Active Substance: CEFTAROLINE FOSAMIL
     Indication: PNEUMONIA
     Route: 065

REACTIONS (4)
  - Fistula [Unknown]
  - Bronchial obstruction [Unknown]
  - Pyopneumothorax [Unknown]
  - Therapeutic product effect incomplete [Unknown]
